FAERS Safety Report 22751599 (Version 5)
Quarter: 2023Q4

REPORT INFORMATION
  Report Type: Spontaneous
  Country: US (occurrence: US)
  Receive Date: 20230726
  Receipt Date: 20231013
  Transmission Date: 20240110
  Serious: Yes (Other)
  Sender: FDA-Public Use
  Company Number: US-PFIZER INC-202300254689

PATIENT
  Age: 50 Year
  Sex: Female
  Weight: 65.77 kg

DRUGS (3)
  1. ESTRING [Suspect]
     Active Substance: ESTRADIOL
     Indication: Vaginal disorder
     Dosage: 2 MG, EVERY 3 MONTHS (2MG ONE RING INSERTED VAGINALLY EVERY 90 DAYS)
     Route: 067
     Dates: start: 202304
  2. ESTRING [Suspect]
     Active Substance: ESTRADIOL
     Indication: Incontinence
  3. ESTRING [Suspect]
     Active Substance: ESTRADIOL
     Indication: Vulvovaginal dryness

REACTIONS (6)
  - Vulvovaginal pain [Recovering/Resolving]
  - Device difficult to use [Recovered/Resolved]
  - Wrong technique in device usage process [Unknown]
  - Device issue [Unknown]
  - Off label use [Unknown]
  - Drug effective for unapproved indication [Unknown]

NARRATIVE: CASE EVENT DATE: 20230709
